FAERS Safety Report 9596727 (Version 2)
Quarter: 2014Q1

REPORT INFORMATION
  Report Type: Spontaneous
  Country: DE (occurrence: DE)
  Receive Date: 20131004
  Receipt Date: 20140204
  Transmission Date: 20141002
  Serious: Yes (Hospitalization)
  Sender: FDA-Public Use
  Company Number: DE-B.I. PHARMACEUTICALS,INC./RIDGEFIELD-2013-BI-30812DE

PATIENT
  Age: 68 Year
  Sex: Male
  Weight: 88 kg

DRUGS (7)
  1. PRADAXA [Suspect]
     Indication: ATRIAL FIBRILLATION
     Dosage: 3.6667 MG
     Route: 048
     Dates: start: 20130502, end: 20130801
  2. ASS 100 [Concomitant]
     Indication: CORONARY ARTERY DISEASE
     Dosage: 100 MG
     Route: 048
  3. ASS 100 [Concomitant]
     Indication: STENT PLACEMENT
  4. ASS 100 [Concomitant]
     Indication: ANTICOAGULANT THERAPY
  5. METFORMIN [Concomitant]
     Indication: TYPE 2 DIABETES MELLITUS
     Dosage: 1700 MG
     Route: 048
  6. DECORTIN [Concomitant]
     Dosage: 0.5 ANZ
     Dates: start: 20130819
  7. DECORTIN [Concomitant]
     Dosage: 15 MG
     Dates: start: 20130819

REACTIONS (1)
  - Vasculitis necrotising [Not Recovered/Not Resolved]
